FAERS Safety Report 8747796 (Version 5)
Quarter: 2012Q4

REPORT INFORMATION
  Report Type: Report from Study
  Country: US (occurrence: US)
  Receive Date: 20120827
  Receipt Date: 20121001
  Transmission Date: 20130627
  Serious: Yes (Hospitalization)
  Sender: FDA-Public Use
  Company Number: US-BRISTOL-MYERS SQUIBB COMPANY-16881054

PATIENT
  Age: 55 Year
  Sex: Male

DRUGS (8)
  1. BMS982470 [Suspect]
     Indication: MALIGNANT MELANOMA
     Dosage: No of courses: 13
     Route: 042
     Dates: start: 20120514
  2. IPILIMUMAB [Suspect]
     Indication: MALIGNANT MELANOMA
     Dosage: No of courses: 4
     Route: 042
     Dates: start: 20120604
  3. LISINOPRIL [Concomitant]
     Dates: start: 20110628
  4. ADVIL [Concomitant]
     Dates: start: 20110912
  5. METAMUCIL [Concomitant]
     Dates: start: 20120521
  6. PRILOSEC [Concomitant]
     Dates: start: 20120521
  7. GABAPENTIN [Concomitant]
     Dates: start: 20120625
  8. OXYCODONE [Concomitant]
     Dates: start: 20120730

REACTIONS (2)
  - Adrenal insufficiency [Not Recovered/Not Resolved]
  - Colitis [Recovered/Resolved]
